FAERS Safety Report 20091667 (Version 1)
Quarter: 2021Q4

REPORT INFORMATION
  Report Type: Spontaneous
  Country: CA (occurrence: CA)
  Receive Date: 20211119
  Receipt Date: 20211119
  Transmission Date: 20220303
  Serious: Yes (Hospitalization)
  Sender: FDA-Public Use
  Company Number: CA-TEVA-2021-CA-1978016

PATIENT
  Age: 86 Year
  Sex: Male
  Weight: 59 kg

DRUGS (16)
  1. CARBOPLATIN [Suspect]
     Active Substance: CARBOPLATIN
     Indication: Metastatic neoplasm
     Route: 042
  2. CARBOPLATIN [Suspect]
     Active Substance: CARBOPLATIN
     Indication: Bladder transitional cell carcinoma
  3. GEMCITABINE [Suspect]
     Active Substance: GEMCITABINE
     Indication: Metastatic neoplasm
     Route: 042
  4. GEMCITABINE [Suspect]
     Active Substance: GEMCITABINE
     Indication: Bladder transitional cell carcinoma
  5. ACETAMINOPHEN [Concomitant]
     Active Substance: ACETAMINOPHEN
  6. ALFUZOSIN [Concomitant]
     Active Substance: ALFUZOSIN
  7. ASPIRIN [Concomitant]
     Active Substance: ASPIRIN
     Route: 065
  8. BISOPROLOL [Concomitant]
     Active Substance: BISOPROLOL
  9. DIMENHYDRINATE [Concomitant]
     Active Substance: DIMENHYDRINATE
  10. FUROSEMIDE [Concomitant]
     Active Substance: FUROSEMIDE
  11. HEPARIN SODIUM [Concomitant]
     Active Substance: HEPARIN SODIUM
  12. KAYEXALATE [Concomitant]
     Active Substance: SODIUM POLYSTYRENE SULFONATE
  13. NICOTINE [Concomitant]
     Active Substance: NICOTINE
  14. OXAZEPAM [Concomitant]
     Active Substance: OXAZEPAM
  15. PANTOPRAZOLE [Concomitant]
     Active Substance: PANTOPRAZOLE
  16. SOLIFENACIN [Concomitant]
     Active Substance: SOLIFENACIN

REACTIONS (4)
  - Anaemia [Recovered/Resolved]
  - Klebsiella infection [Recovered/Resolved]
  - Pyrexia [Recovered/Resolved]
  - Urosepsis [Recovered/Resolved]
